FAERS Safety Report 20458204 (Version 1)
Quarter: 2022Q1

REPORT INFORMATION
  Report Type: Spontaneous
  Country: US (occurrence: US)
  Receive Date: 20220211
  Receipt Date: 20220211
  Transmission Date: 20220423
  Serious: Yes (Hospitalization, Other)
  Sender: FDA-Public Use
  Company Number: None

PATIENT
  Age: 19 Day
  Sex: Male
  Weight: .75 kg

DRUGS (4)
  1. VANCOMYCIN [Suspect]
     Active Substance: VANCOMYCIN
     Indication: Sepsis
     Dosage: UNK
     Route: 065
  2. CEFEPIME [Concomitant]
     Active Substance: CEFEPIME HYDROCHLORIDE
     Indication: Pneumonia klebsiella
     Dosage: UNK
     Route: 042
  3. TOBRAMYCIN [Concomitant]
     Active Substance: TOBRAMYCIN
     Indication: Product used for unknown indication
     Dosage: 4 MILLIGRAM/KILOGRAM; EVERY 24HOURS
     Route: 042
  4. TOBRAMYCIN [Concomitant]
     Active Substance: TOBRAMYCIN
     Dosage: 4.5 MG/KG (AND WEIGHT-ADJUSTED) EVERY 24 HOURS
     Route: 042

REACTIONS (4)
  - Acidosis [Recovered/Resolved]
  - Nephropathy toxic [Recovered/Resolved]
  - Acute kidney injury [Recovered/Resolved]
  - Off label use [Unknown]
